FAERS Safety Report 4687988-9 (Version None)
Quarter: 2005Q2

REPORT INFORMATION
  Report Type: 
  Country: None (occurrence: None)
  Receive Date: 20050608
  Receipt Date: 20050526
  Transmission Date: 20051028
  Serious: Yes (Death, Other)
  Sender: FDA-Public Use
  Company Number: 2004093246

PATIENT
  Age: 70 Year
  Sex: Male

DRUGS (12)
  1. NEURONTIN [Suspect]
     Indication: PAIN
     Dosage: ORAL
     Route: 048
  2. LEVAQUIN (LEVOFLOXACIN0 [Concomitant]
  3. METRONIDAZOLE [Concomitant]
  4. ZESTRIL [Concomitant]
  5. CASODEX [Concomitant]
  6. OXYCODONE HCL [Concomitant]
  7. PROTONIX [Concomitant]
  8. ACIPHEX (RABEPRAZOLED SODIUM) [Concomitant]
  9. OXYCONTIN [Concomitant]
  10. K-DUR 10 [Concomitant]
  11. ANTIBIOTICS (ANTIBIOTICS) [Concomitant]
  12. ALL OTHER THERAPEUTIC PRODUCTS (ALL OTHER THERAPEUTIC PRODUCTS) [Concomitant]

REACTIONS (5)
  - COMPLETED SUICIDE [None]
  - GASTROINTESTINAL DISORDER [None]
  - GUN SHOT WOUND [None]
  - INJURY [None]
  - INSOMNIA [None]
